FAERS Safety Report 23833566 (Version 1)
Quarter: 2024Q2

REPORT INFORMATION
  Report Type: Spontaneous
  Country: US (occurrence: US)
  Receive Date: 20240508
  Receipt Date: 20240508
  Transmission Date: 20240716
  Serious: No
  Sender: FDA-Public Use
  Company Number: US-BAUSCHBL-2024BNL026499

PATIENT
  Age: 53 Year
  Sex: Female

DRUGS (1)
  1. LATANOPROST [Suspect]
     Active Substance: LATANOPROST
     Indication: Product used for unknown indication
     Route: 065

REACTIONS (5)
  - Lacrimation increased [Unknown]
  - Eye pain [Unknown]
  - Ocular hyperaemia [Unknown]
  - Product use issue [Unknown]
  - Product closure removal difficult [Unknown]
